FAERS Safety Report 20088223 (Version 1)
Quarter: 2021Q4

REPORT INFORMATION
  Report Type: Spontaneous
  Country: JP (occurrence: JP)
  Receive Date: 20211118
  Receipt Date: 20211118
  Transmission Date: 20220303
  Serious: Yes (Other)
  Sender: FDA-Public Use
  Company Number: JP-TAKEDA-2021TJP024362

PATIENT
  Age: 77 Year
  Sex: Female

DRUGS (4)
  1. ALUNBRIG [Suspect]
     Active Substance: BRIGATINIB
     Indication: Non-small cell lung cancer
     Dosage: 90 MILLIGRAM, QD
     Route: 048
     Dates: start: 20210428
  2. ALUNBRIG [Suspect]
     Active Substance: BRIGATINIB
     Dosage: 180 MILLIGRAM
     Route: 048
     Dates: start: 20210505, end: 20210512
  3. ALUNBRIG [Suspect]
     Active Substance: BRIGATINIB
     Dosage: 120 MILLIGRAM
     Route: 048
     Dates: start: 20210513, end: 20210616
  4. ALUNBRIG [Suspect]
     Active Substance: BRIGATINIB
     Dosage: 90 MILLIGRAM, QD
     Route: 048
     Dates: start: 20210701, end: 202110

REACTIONS (10)
  - Therapeutic product effect incomplete [Recovering/Resolving]
  - Metastases to central nervous system [Unknown]
  - Condition aggravated [Unknown]
  - Performance status decreased [Unknown]
  - Psychiatric symptom [Unknown]
  - Hepatic function abnormal [Recovered/Resolved]
  - Hepatic function abnormal [Not Recovered/Not Resolved]
  - Malaise [Unknown]
  - Decreased appetite [Unknown]
  - Oedema [Unknown]

NARRATIVE: CASE EVENT DATE: 20210512
